FAERS Safety Report 5874476-7 (Version None)
Quarter: 2008Q3

REPORT INFORMATION
  Report Type: 
  Country: None (occurrence: None)
  Receive Date: 20080908
  Receipt Date: 20080903
  Transmission Date: 20090109
  Serious: Yes (Other)
  Sender: FDA-Public Use
  Company Number: GB-PFIZER INC-2008074023

PATIENT
  Age: 48 Year
  Sex: Male
  Weight: 102 kg

DRUGS (4)
  1. ATORVASTATIN [Suspect]
     Indication: MYOCARDIAL ISCHAEMIA
     Dates: start: 20080725, end: 20080813
  2. ALBUTEROL [Concomitant]
  3. MINOCYCLINE HYDROCHLORIDE [Concomitant]
  4. NICORANDIL [Concomitant]

REACTIONS (1)
  - VASCULITIS [None]
